FAERS Safety Report 6235545-5 (Version None)
Quarter: 2009Q2

REPORT INFORMATION
  Report Type: 
  Country: None (occurrence: None)
  Receive Date: 20090618
  Receipt Date: 20081121
  Transmission Date: 20091009
  Serious: No
  Sender: FDA-Public Use
  Company Number: US-ASTRAZENECA-2008UW26205

PATIENT
  Age: 35 Year
  Sex: Female
  Weight: 93 kg

DRUGS (1)
  1. RHINOCORT [Suspect]
     Indication: SEASONAL ALLERGY
     Dosage: 2 SPRAYS PER NOSTRIL PER DAY
     Route: 045

REACTIONS (1)
  - EYELID OEDEMA [None]
